FAERS Safety Report 10380277 (Version 2)
Quarter: 2015Q1

REPORT INFORMATION
  Report Type: Spontaneous
  Country: DK (occurrence: DK)
  Receive Date: 20140813
  Receipt Date: 20150210
  Transmission Date: 20150720
  Serious: Yes (Other)
  Sender: FDA-Public Use
  Company Number: DK-009507513-1408DNK004367

PATIENT
  Age: 36 Year
  Sex: Male
  Weight: 79 kg

DRUGS (2)
  1. PEGINTRON [Suspect]
     Active Substance: PEGINTERFERON ALFA-2B
     Indication: HEPATITIS C
     Dosage: UNK
     Dates: start: 20130219, end: 20130806
  2. COPEGUS [Suspect]
     Active Substance: RIBAVIRIN
     Indication: HEPATITIS C
     Dosage: UNK
     Route: 048
     Dates: start: 20130219, end: 20130806

REACTIONS (7)
  - Fatigue [Recovered/Resolved]
  - Visual acuity reduced [Not Recovered/Not Resolved]
  - Herpes virus infection [Recovered/Resolved]
  - Papilloedema [Recovered/Resolved]
  - Visual field defect [Not Recovered/Not Resolved]
  - Influenza [Not Recovered/Not Resolved]
  - Vision blurred [Recovered/Resolved]

NARRATIVE: CASE EVENT DATE: 20130221
